FAERS Safety Report 17805464 (Version 1)
Quarter: 2020Q2

REPORT INFORMATION
  Report Type: Report from Study
  Country: ES (occurrence: ES)
  Receive Date: 20200520
  Receipt Date: 20200520
  Transmission Date: 20200714
  Serious: Yes (Hospitalization)
  Sender: FDA-Public Use
  Company Number: ES-ACCORD-182543

PATIENT
  Age: 79 Year
  Sex: Female

DRUGS (6)
  1. QUINAPRIL / HYDROCHLOROTHIAZIDE AUROBINDO [Concomitant]
     Indication: HYPERTENSION
     Dosage: STRENGTH: 20 MG / 12.5 MG, FILM COATED TABLETS EFG, 28 TABLETS
     Route: 048
     Dates: start: 201304, end: 20170617
  2. BISOPROLOL [Concomitant]
     Active Substance: BISOPROLOL
     Dosage: BISOPROLOL 2328A
     Route: 048
     Dates: start: 2010
  3. CLOPIDOGREL [Suspect]
     Active Substance: CLOPIDOGREL BISULFATE
     Indication: PRODUCT USED FOR UNKNOWN INDICATION
     Dosage: CLOPIDOGREL 7300A
     Route: 048
     Dates: start: 201702, end: 20170617
  4. ATORVASTATIN [Concomitant]
     Active Substance: ATORVASTATIN
     Indication: DYSLIPIDAEMIA
     Dosage: ATORVASTATIN 7400A
     Route: 048
     Dates: start: 2012
  5. TICAGRELOR. [Interacting]
     Active Substance: TICAGRELOR
     Indication: PRODUCT USED FOR UNKNOWN INDICATION
     Dosage: TICAGRELOR 8461A
     Route: 048
     Dates: start: 201702, end: 20170617
  6. AMLODIPINE [Concomitant]
     Active Substance: AMLODIPINE BESYLATE
     Indication: HYPERTENSION
     Dosage: AMLODIPINE 2503A
     Route: 048
     Dates: end: 20170617

REACTIONS (2)
  - Lower gastrointestinal haemorrhage [Recovered/Resolved]
  - Drug interaction [Unknown]

NARRATIVE: CASE EVENT DATE: 20170612
